FAERS Safety Report 23681293 (Version 1)
Quarter: 2024Q1

REPORT INFORMATION
  Report Type: Spontaneous
  Country: IT (occurrence: IT)
  Receive Date: 20240328
  Receipt Date: 20240328
  Transmission Date: 20240410
  Serious: Yes (Other)
  Sender: FDA-Public Use
  Company Number: IT-SUN PHARMACEUTICAL INDUSTRIES LTD-2024RR-439044

PATIENT
  Age: 7 Year
  Sex: Male
  Weight: 23 kg

DRUGS (7)
  1. TEMOZOLOMIDE [Suspect]
     Active Substance: TEMOZOLOMIDE
     Indication: Neuroblastoma recurrent
     Dosage: 50 MG ON 28/11, 95 MG FROM DAY 29/11 TO DAY 01/12/2023, 105 MG ON 02/12/2023
     Route: 048
     Dates: start: 20231129, end: 20231202
  2. DINUTUXIMAB BETA [Suspect]
     Active Substance: DINUTUXIMAB BETA
     Indication: Neuroblastoma recurrent
     Dosage: 44.30 MG CONTINUOUS INFUSION 2.1 ML/H
     Route: 065
     Dates: start: 20231129, end: 20231204
  3. IRINOTECAN [Suspect]
     Active Substance: IRINOTECAN
     Indication: Neuroblastoma recurrent
     Dosage: 44.30 MG/DAY
     Route: 065
     Dates: start: 20231128, end: 20231202
  4. MORPHINE [Concomitant]
     Active Substance: MORPHINE
     Indication: Product used for unknown indication
     Dosage: CONTINUOUS INFUSION IN 48 ML RATE 2 ML/H ON 29/11, 1.5 ML/H FROM 30/11 TO 01/12, 1 ML/H FROM 02/12 T
     Route: 065
     Dates: start: 20231129, end: 20231203
  5. ONDANSETRON HYDROCHLORIDE [Concomitant]
     Active Substance: ONDANSETRON HYDROCHLORIDE
     Indication: Prophylaxis of nausea and vomiting
     Dosage: 8 MG/DAY FROM DAY 28/11 TO DAY 02/12/23 4 MG/DAY ON 04/12/23
     Route: 065
     Dates: start: 20231128, end: 20231202
  6. CHLORPHENIRAMINE MALEATE [Concomitant]
     Active Substance: CHLORPHENIRAMINE MALEATE
     Indication: Allergy prophylaxis
     Dosage: 5 MG/DAY
     Route: 065
     Dates: start: 20231129, end: 20231204
  7. PARACETAMOL S.A.L.F. [Concomitant]
     Indication: Product used for unknown indication
     Dosage: 350 MG/DAY FROM DAY 29/11 TO 04/12/2023 ON 30/11, 01, 02/12/23 ADMINISTERED 350 MG TWICE A DAY
     Route: 065
     Dates: start: 20231128, end: 20231202

REACTIONS (4)
  - Eosinophilia [Not Recovered/Not Resolved]
  - Neutropenia [Not Recovered/Not Resolved]
  - Pyrexia [Recovered/Resolved]
  - Hypokalaemia [Unknown]

NARRATIVE: CASE EVENT DATE: 20231202
